FAERS Safety Report 8019016-1 (Version None)
Quarter: 2012Q1

REPORT INFORMATION
  Report Type: 
  Country: None (occurrence: None)
  Receive Date: 20120103
  Receipt Date: 20111222
  Transmission Date: 20120608
  Serious: Yes (Hospitalization)
  Sender: FDA-Public Use
  Company Number: JP-ELI_LILLY_AND_COMPANY-JP201112006163

PATIENT
  Age: 46 Year
  Sex: Male

DRUGS (4)
  1. ROHYPNOL [Concomitant]
     Dosage: UNK
     Route: 065
  2. ZYPREXA [Suspect]
     Dosage: 7.5 MG, UNK
     Route: 048
  3. LEXOTAN [Concomitant]
     Dosage: UNK
     Route: 065
  4. MEILAX [Concomitant]
     Dosage: 2 MG, UNK
     Route: 065

REACTIONS (1)
  - THROMBOCYTOPENIA [None]
